FAERS Safety Report 11065187 (Version 2)
Quarter: 2015Q2

REPORT INFORMATION
  Report Type: Spontaneous
  Country: US (occurrence: US)
  Receive Date: 20150424
  Receipt Date: 20150525
  Transmission Date: 20150821
  Serious: No
  Sender: FDA-Public Use
  Company Number: US-JNJFOC-20150304806

PATIENT
  Age: 37 Year
  Sex: Female
  Weight: 84 kg

DRUGS (3)
  1. DIENOGEST [Concomitant]
     Active Substance: DIENOGEST
     Dosage: BED TIME
     Route: 048
  2. TRAZADOL [Concomitant]
     Indication: INSOMNIA
     Dosage: BED TIME
     Route: 048
  3. NUCYNTA ER [Suspect]
     Active Substance: TAPENTADOL HYDROCHLORIDE
     Indication: PRODUCT USED FOR UNKNOWN INDICATION
     Route: 048

REACTIONS (1)
  - Drug prescribing error [Unknown]

NARRATIVE: CASE EVENT DATE: 201503
